FAERS Safety Report 15140941 (Version 3)
Quarter: 2018Q3

REPORT INFORMATION
  Report Type: Spontaneous
  Country: JP (occurrence: JP)
  Receive Date: 20180713
  Receipt Date: 20180730
  Transmission Date: 20181010
  Serious: Yes (Hospitalization, Other)
  Sender: FDA-Public Use
  Company Number: JP-PFIZER INC-2018282651

PATIENT
  Age: 53 Year
  Sex: Female

DRUGS (17)
  1. 5?FU [Concomitant]
     Active Substance: FLUOROURACIL
     Dosage: UNK (TOTAL OF 4 CYCLES)
  2. AVASTIN [Concomitant]
     Active Substance: BEVACIZUMAB
     Dosage: 5 MG/KG, CYCLIC (THE 3RD CYCLE)
  3. ELPLAT [Suspect]
     Active Substance: OXALIPLATIN
     Dosage: 85 MG/M2, CYCLIC (4 TIMES FOR 2?WEEK PERIODS)
  4. 5?FU [Concomitant]
     Active Substance: FLUOROURACIL
     Dosage: 2400 MG/M2, UNK  (46 HOUR CONTINUOUS I.V. DRIP)
     Route: 041
  5. CAMPTO [Suspect]
     Active Substance: IRINOTECAN
     Dosage: 150 MG/M2, UNK (FOR 2 WEEKS)
  6. LEVOFOLINATE YAKULT [Suspect]
     Active Substance: LEVOLEUCOVORIN CALCIUM
     Indication: COLON CANCER METASTATIC
     Dosage: UNK
     Route: 040
  7. LEVOFOLINATE YAKULT [Suspect]
     Active Substance: LEVOLEUCOVORIN CALCIUM
     Dosage: 75 MG, DAILY (2 WEEKS ON, 1 WEEK OFF)
     Route: 048
  8. ELPLAT [Suspect]
     Active Substance: OXALIPLATIN
     Indication: COLON CANCER METASTATIC
     Dosage: UNK
     Route: 040
  9. ELPLAT [Suspect]
     Active Substance: OXALIPLATIN
     Dosage: UNK UNK, 1X/DAY (TOTAL OF 4 CYCLES)
     Route: 041
  10. 5?FU [Concomitant]
     Active Substance: FLUOROURACIL
     Dosage: 400 MG/M2, UNK (4 TIMES FOR 2?WEEK PERIODS)
     Route: 040
  11. AVASTIN [Concomitant]
     Active Substance: BEVACIZUMAB
     Indication: COLON CANCER METASTATIC
     Dosage: UNK
     Route: 040
  12. LEVOFOLINATE YAKULT [Suspect]
     Active Substance: LEVOLEUCOVORIN CALCIUM
     Dosage: UNK UNK, 1X/DAY (TOTAL OF 4 CYCLES)
     Route: 041
  13. CAMPTO [Suspect]
     Active Substance: IRINOTECAN
     Dosage: UNK UNK, 1X/DAY (TOTAL OF 4 CYCLES)
     Route: 041
  14. LEVOFOLINATE YAKULT [Suspect]
     Active Substance: LEVOLEUCOVORIN CALCIUM
     Dosage: 200 MG/M2, CYCLIC
  15. AVASTIN [Concomitant]
     Active Substance: BEVACIZUMAB
     Dosage: UNK, 1X/DAY (TOTAL OF 4 CYCLES)
     Route: 041
  16. CAMPTO [Suspect]
     Active Substance: IRINOTECAN
     Indication: COLON CANCER METASTATIC
     Dosage: UNK
     Route: 040
  17. 5?FU [Concomitant]
     Active Substance: FLUOROURACIL
     Indication: COLON CANCER METASTATIC
     Dosage: UNK
     Route: 040

REACTIONS (4)
  - Fatigue [Unknown]
  - Decreased appetite [Unknown]
  - Nausea [Unknown]
  - White blood cell count decreased [Unknown]
